FAERS Safety Report 6989166-7 (Version None)
Quarter: 2010Q3

REPORT INFORMATION
  Report Type: 
  Country: None (occurrence: None)
  Receive Date: 20100916
  Receipt Date: 20090812
  Transmission Date: 20110219
  Serious: Yes (Other)
  Sender: FDA-Public Use
  Company Number: US-PFIZER INC-2009254608

PATIENT
  Sex: Male
  Weight: 117.91 kg

DRUGS (2)
  1. LYRICA [Suspect]
     Indication: BACK PAIN
     Dosage: UNK
     Dates: start: 20080201
  2. DITROPAN [Interacting]
     Indication: PROSTATOMEGALY
     Dosage: UNK

REACTIONS (8)
  - DEPRESSION [None]
  - DRUG INTERACTION [None]
  - MEMORY IMPAIRMENT [None]
  - PROSTATOMEGALY [None]
  - SOMNOLENCE [None]
  - SYNCOPE [None]
  - TEMPORAL LOBE EPILEPSY [None]
  - VISUAL IMPAIRMENT [None]
